FAERS Safety Report 16756084 (Version 2)
Quarter: 2020Q3

REPORT INFORMATION
  Report Type: Spontaneous
  Country: US (occurrence: US)
  Receive Date: 20190829
  Receipt Date: 20200830
  Transmission Date: 20201102
  Serious: No
  Sender: FDA-Public Use
  Company Number: US-ENDO PHARMACEUTICALS INC-2019-105433

PATIENT
  Sex: Female
  Weight: 58.95 kg

DRUGS (2)
  1. PREDNISONE. [Suspect]
     Active Substance: PREDNISONE
     Indication: PRURITUS
     Dosage: 5 MG, 7 COUNT THEN 30 COUNT DISPENSED, UNKNOWN
     Route: 065
     Dates: start: 20190429
  2. LORAZEPAM. [Concomitant]
     Active Substance: LORAZEPAM
     Indication: ANXIETY
     Dosage: UNK

REACTIONS (3)
  - Irritability [Unknown]
  - Insomnia [Unknown]
  - Drug ineffective [Unknown]
